FAERS Safety Report 13384722 (Version 1)
Quarter: 2017Q1

REPORT INFORMATION
  Report Type: Spontaneous
  Country: PT (occurrence: PT)
  Receive Date: 20170329
  Receipt Date: 20170329
  Transmission Date: 20170429
  Serious: Yes (Other)
  Sender: FDA-Public Use
  Company Number: PHHY2017PT043261

PATIENT
  Sex: Male

DRUGS (1)
  1. VOLTAREN [Suspect]
     Active Substance: DICLOFENAC SODIUM
     Indication: PRODUCT USED FOR UNKNOWN INDICATION
     Dosage: UNK
     Route: 048
     Dates: start: 2012

REACTIONS (7)
  - Rhinorrhoea [Recovered/Resolved]
  - Tongue oedema [Recovered/Resolved]
  - Conjunctival hyperaemia [Recovered/Resolved]
  - Angioedema [Recovered/Resolved]
  - Face oedema [Recovered/Resolved]
  - Lacrimation increased [Recovered/Resolved]
  - Lip oedema [Recovered/Resolved]

NARRATIVE: CASE EVENT DATE: 2012
